FAERS Safety Report 24024644 (Version 3)
Quarter: 2024Q3

REPORT INFORMATION
  Report Type: Report from Study
  Country: IT (occurrence: IT)
  Receive Date: 20240628
  Receipt Date: 20240710
  Transmission Date: 20241017
  Serious: No
  Sender: ROCHE
  Company Number: IT-ROCHE-3529734

PATIENT
  Age: 68 Year
  Sex: Female
  Weight: 68.5 kg

DRUGS (2)
  1. ALECTINIB [Suspect]
     Active Substance: ALECTINIB
     Indication: Lung cancer metastatic
     Route: 048
     Dates: start: 20220526
  2. ALECTINIB [Suspect]
     Active Substance: ALECTINIB
     Dosage: FREQUENCY TEXT:OTHER
     Route: 048
     Dates: start: 20190603

REACTIONS (1)
  - Pyrexia [Recovered/Resolved]

NARRATIVE: CASE EVENT DATE: 20240220
